FAERS Safety Report 17922541 (Version 2)
Quarter: 2020Q2

REPORT INFORMATION
  Report Type: Spontaneous
  Country: US (occurrence: US)
  Receive Date: 20200622
  Receipt Date: 20200623
  Transmission Date: 20200714
  Serious: No
  Sender: FDA-Public Use
  Company Number: US-PFIZER INC-2020239392

PATIENT
  Age: 46 Year
  Sex: Female

DRUGS (5)
  1. GABAPENTIN. [Concomitant]
     Active Substance: GABAPENTIN
     Dosage: UNK
  2. SEROQUEL [Concomitant]
     Active Substance: QUETIAPINE FUMARATE
     Dosage: UNK
  3. ZOLOFT [Suspect]
     Active Substance: SERTRALINE HYDROCHLORIDE
     Dosage: 50 MG, 1X/DAY (TAKES 50 MG NIGHTLY) (TWO 25MG PILLS AT NIGHT)
  4. ZOLOFT [Suspect]
     Active Substance: SERTRALINE HYDROCHLORIDE
     Indication: DEPRESSION
     Dosage: 100 MG, 1X/DAY (100MG OF ZOLOFT A NIGHT)
  5. ZOLOFT [Suspect]
     Active Substance: SERTRALINE HYDROCHLORIDE
     Indication: ANXIETY
     Dosage: 25 MG, DAILY (25 MG PER DAY)

REACTIONS (7)
  - Photosensitivity reaction [Not Recovered/Not Resolved]
  - Rash macular [Unknown]
  - Urticaria [Unknown]
  - Erythema [Unknown]
  - Pruritus [Not Recovered/Not Resolved]
  - Agitation [Unknown]
  - Alopecia [Unknown]
